FAERS Safety Report 19429044 (Version 1)
Quarter: 2021Q2

REPORT INFORMATION
  Report Type: Spontaneous
  Country: US (occurrence: US)
  Receive Date: 20210617
  Receipt Date: 20210617
  Transmission Date: 20210717
  Serious: Yes (Hospitalization)
  Sender: FDA-Public Use
  Company Number: None

PATIENT
  Age: 46 Year
  Sex: Female

DRUGS (1)
  1. COSENTYX [Suspect]
     Active Substance: SECUKINUMAB
     Indication: PSORIASIS
     Dosage: OTHER FREQUENCY:Q4WKS;?
     Route: 058
     Dates: start: 20200401

REACTIONS (2)
  - Therapy interrupted [None]
  - Cholecystectomy [None]

NARRATIVE: CASE EVENT DATE: 20210612
